FAERS Safety Report 15359493 (Version 1)
Quarter: 2018Q4

REPORT INFORMATION
  Report Type: Spontaneous
  Country: DE (occurrence: DE)
  Receive Date: 20180907
  Receipt Date: 20180907
  Transmission Date: 20190204
  Serious: Yes (Congenital Anomaly)
  Sender: FDA-Public Use
  Company Number: DE-TEVA-2018-DE-952065

PATIENT
  Age: 1 Day
  Sex: Female
  Weight: 3.22 kg

DRUGS (4)
  1. FOLIO FORTE [Concomitant]
     Active Substance: FOLIC ACID\VITAMINS
     Indication: PROPHYLAXIS OF NEURAL TUBE DEFECT
     Dosage: .8 MILLIGRAM DAILY; 0.8 [MG/D ]
     Route: 064
     Dates: start: 20170510, end: 20180209
  2. L-THYROXIN 75 [Concomitant]
     Active Substance: LEVOTHYROXINE
     Indication: AUTOIMMUNE THYROIDITIS
     Dosage: 75 MICROGRAM DAILY; 75 [?G/D ]
     Route: 064
     Dates: start: 20170510, end: 20180209
  3. PREDNISOLON 5 MG [Suspect]
     Active Substance: PREDNISOLONE
     Indication: RHEUMATOID ARTHRITIS
     Dosage: 5 MILLIGRAM DAILY; 5 [MG/D ]
     Route: 064
     Dates: start: 20170510, end: 20180209
  4. ENBREL [Suspect]
     Active Substance: ETANERCEPT
     Indication: RHEUMATOID ARTHRITIS
     Dosage: 50 [MG/D (1X EVERY 10 D) ]
     Route: 064

REACTIONS (2)
  - Talipes [Recovered/Resolved with Sequelae]
  - Neonatal asphyxia [Recovered/Resolved]

NARRATIVE: CASE EVENT DATE: 20180209
